FAERS Safety Report 6131495-3 (Version None)
Quarter: 2009Q1

REPORT INFORMATION
  Report Type: 
  Country: None (occurrence: None)
  Receive Date: 20090325
  Receipt Date: 20081006
  Transmission Date: 20090719
  Serious: No
  Sender: FDA-Public Use
  Company Number: US-BRISTOL-MYERS SQUIBB COMPANY-14316236

PATIENT
  Age: 72 Year
  Sex: Male

DRUGS (4)
  1. ERBITUX [Suspect]
     Dosage: INITIATED ON 31-JUL-2008.
     Dates: start: 20080818, end: 20080818
  2. RADIATION THERAPY [Suspect]
  3. VICODIN [Concomitant]
  4. SALAGEN [Concomitant]

REACTIONS (5)
  - CHAPPED LIPS [None]
  - DYSPHAGIA [None]
  - HYPOAESTHESIA [None]
  - LIP HAEMORRHAGE [None]
  - LIP SWELLING [None]
